FAERS Safety Report 8303914-5 (Version None)
Quarter: 2012Q2

REPORT INFORMATION
  Report Type: 
  Country: None (occurrence: None)
  Receive Date: 20120423
  Receipt Date: 20120411
  Transmission Date: 20120825
  Serious: Yes (Other)
  Sender: FDA-Public Use
  Company Number: BR-NOVOPROD-349501

PATIENT
  Age: 26 Year
  Sex: Female
  Weight: 72 kg

DRUGS (1)
  1. VICTOZA [Suspect]
     Indication: OFF LABEL USE
     Dosage: 1.2 MG, QD
     Route: 058
     Dates: start: 20111115, end: 20111215

REACTIONS (1)
  - HYPERTHYROIDISM [None]
